FAERS Safety Report 15675476 (Version 1)
Quarter: 2018Q4

REPORT INFORMATION
  Report Type: Spontaneous
  Country: DE (occurrence: DE)
  Receive Date: 20181130
  Receipt Date: 20181130
  Transmission Date: 20190205
  Serious: Yes (Hospitalization, Other)
  Sender: FDA-Public Use
  Company Number: DE-009507513-1811DEU011234

PATIENT
  Age: 38 Year
  Sex: Female

DRUGS (4)
  1. ORGALUTRAN [Suspect]
     Active Substance: GANIRELIX ACETATE
     Indication: ASSISTED REPRODUCTIVE TECHNOLOGY
     Dosage: UNK
  2. PERGOVERIS [Suspect]
     Active Substance: FOLLITROPIN\LUTROPIN ALFA
     Indication: ASSISTED REPRODUCTIVE TECHNOLOGY
     Dosage: 112,5 IU - 150 IU
  3. OVITRELLE [Suspect]
     Active Substance: CHORIOGONADOTROPIN ALFA
     Indication: ASSISTED REPRODUCTIVE TECHNOLOGY
     Dosage: UNK
  4. PERGOVERIS [Suspect]
     Active Substance: FOLLITROPIN\LUTROPIN ALFA
     Dosage: UNK

REACTIONS (2)
  - Ovarian haemorrhage [Recovered/Resolved]
  - Local reaction [Recovered/Resolved]

NARRATIVE: CASE EVENT DATE: 20180801
